FAERS Safety Report 18771064 (Version 8)
Quarter: 2021Q2

REPORT INFORMATION
  Report Type: Report from Study
  Country: US (occurrence: US)
  Receive Date: 20210121
  Receipt Date: 20210629
  Transmission Date: 20210717
  Serious: Yes (Hospitalization, Other)
  Sender: FDA-Public Use
  Company Number: US-TAKEDA-2021TUS003038

PATIENT
  Sex: Female

DRUGS (17)
  1. TEDUGLUTIDE [Suspect]
     Active Substance: TEDUGLUTIDE
     Dosage: 0.0395 UNK, QD
     Route: 058
     Dates: start: 20201203
  2. TEDUGLUTIDE [Suspect]
     Active Substance: TEDUGLUTIDE
     Dosage: 0.0395 UNK, QD
     Route: 058
     Dates: start: 20201203
  3. SODIUM CHLORIDE. [Concomitant]
     Active Substance: SODIUM CHLORIDE
     Dosage: 3 DOSAGE FORM, QD
     Route: 065
  4. TEDUGLUTIDE [Suspect]
     Active Substance: TEDUGLUTIDE
     Indication: SHORT-BOWEL SYNDROME
     Dosage: 1.98 MILLIGRAM, QD
     Route: 058
     Dates: start: 20201130
  5. TEDUGLUTIDE [Suspect]
     Active Substance: TEDUGLUTIDE
     Indication: SHORT-BOWEL SYNDROME
     Dosage: 1.98 MILLIGRAM, QD
     Route: 058
     Dates: start: 20201130
  6. TEDUGLUTIDE [Suspect]
     Active Substance: TEDUGLUTIDE
     Dosage: 0.198 MILLILITER
     Route: 058
     Dates: start: 202012
  7. TEDUGLUTIDE [Suspect]
     Active Substance: TEDUGLUTIDE
     Indication: SHORT-BOWEL SYNDROME
     Dosage: 1.98 MILLIGRAM, QD
     Route: 058
     Dates: start: 20201130
  8. TEDUGLUTIDE [Suspect]
     Active Substance: TEDUGLUTIDE
     Dosage: 1.98 MILLIGRAM, QD
     Route: 058
     Dates: start: 20201201
  9. TEDUGLUTIDE [Suspect]
     Active Substance: TEDUGLUTIDE
     Dosage: 0.0395 UNK, QD
     Route: 058
     Dates: start: 20201203
  10. TEDUGLUTIDE [Suspect]
     Active Substance: TEDUGLUTIDE
     Dosage: 1.98 MILLIGRAM, QD
     Route: 058
     Dates: start: 20201201
  11. TEDUGLUTIDE [Suspect]
     Active Substance: TEDUGLUTIDE
     Dosage: 0.198 MILLILITER
     Route: 058
     Dates: start: 202012
  12. TEDUGLUTIDE [Suspect]
     Active Substance: TEDUGLUTIDE
     Indication: SHORT-BOWEL SYNDROME
     Dosage: 1.98 MILLIGRAM, QD
     Route: 058
     Dates: start: 20201130
  13. TEDUGLUTIDE [Suspect]
     Active Substance: TEDUGLUTIDE
     Dosage: 0.198 MILLILITER
     Route: 058
     Dates: start: 202012
  14. TEDUGLUTIDE [Suspect]
     Active Substance: TEDUGLUTIDE
     Dosage: 0.0395 UNK, QD
     Route: 058
     Dates: start: 20201203
  15. TEDUGLUTIDE [Suspect]
     Active Substance: TEDUGLUTIDE
     Dosage: 1.98 MILLIGRAM, QD
     Route: 058
     Dates: start: 20201201
  16. TEDUGLUTIDE [Suspect]
     Active Substance: TEDUGLUTIDE
     Dosage: 1.98 MILLIGRAM, QD
     Route: 058
     Dates: start: 20201201
  17. TEDUGLUTIDE [Suspect]
     Active Substance: TEDUGLUTIDE
     Dosage: 0.198 MILLILITER
     Route: 058
     Dates: start: 202012

REACTIONS (4)
  - Hyponatraemia [Not Recovered/Not Resolved]
  - Cholelithiasis [Unknown]
  - Fall [Recovered/Resolved]
  - Cholecystitis infective [Recovered/Resolved]
